FAERS Safety Report 18958283 (Version 1)
Quarter: 2021Q1

REPORT INFORMATION
  Report Type: Spontaneous
  Country: US (occurrence: US)
  Receive Date: 20210302
  Receipt Date: 20210302
  Transmission Date: 20210420
  Serious: No
  Sender: FDA-Public Use
  Company Number: US-BIOVITRUM-2021US2059

PATIENT
  Sex: Male
  Weight: 7 kg

DRUGS (4)
  1. SYNAGIS [Suspect]
     Active Substance: PALIVIZUMAB
     Indication: PREMATURE BABY
     Route: 030
  2. SYNAGIS [Suspect]
     Active Substance: PALIVIZUMAB
     Indication: PREMATURE BABY
  3. EPINEPHRINE HCL [Concomitant]
     Active Substance: EPINEPHRINE
  4. ANCILLARY SUPPLIES [Concomitant]

REACTIONS (3)
  - Pigmentation disorder [Unknown]
  - Respiratory rate decreased [Unknown]
  - Skin discolouration [Unknown]
